FAERS Safety Report 13404980 (Version 3)
Quarter: 2017Q3

REPORT INFORMATION
  Report Type: Report from Study
  Country: None (occurrence: US)
  Receive Date: 20170405
  Receipt Date: 20170717
  Transmission Date: 20171127
  Serious: Yes (Hospitalization, Other)
  Sender: FDA-Public Use
  Company Number: US-ABBVIE-17K-163-1929405-00

PATIENT
  Age: 43 Year
  Sex: Female
  Weight: 60.84 kg

DRUGS (3)
  1. HUMIRA [Suspect]
     Active Substance: ADALIMUMAB
     Indication: ANKYLOSING SPONDYLITIS
     Route: 058
     Dates: start: 20160906, end: 20170406
  2. SYNTHROID [Concomitant]
     Active Substance: LEVOTHYROXINE SODIUM
     Indication: HYPOTHYROIDISM
  3. CLINDAMYCIN. [Concomitant]
     Active Substance: CLINDAMYCIN
     Indication: ACNE

REACTIONS (12)
  - Diplopia [Recovering/Resolving]
  - Sinusitis [Recovering/Resolving]
  - Vomiting [Recovering/Resolving]
  - Asthenia [Recovering/Resolving]
  - Neuromyopathy [Not Recovered/Not Resolved]
  - Influenza [Recovering/Resolving]
  - Lipoma [Recovered/Resolved]
  - Myasthenia gravis [Recovering/Resolving]
  - Syncope [Recovered/Resolved]
  - Dysphagia [Recovering/Resolving]
  - Dyspnoea [Recovered/Resolved]
  - Cough [Recovering/Resolving]

NARRATIVE: CASE EVENT DATE: 201702
